FAERS Safety Report 9241698 (Version 2)
Quarter: 2013Q2

REPORT INFORMATION
  Report Type: Report from Study
  Country: DE (occurrence: DE)
  Receive Date: 20130419
  Receipt Date: 20130503
  Transmission Date: 20140414
  Serious: Yes (Death, Hospitalization)
  Sender: FDA-Public Use
  Company Number: DE-MERCK-1304DEU007192

PATIENT
  Age: 12 Year
  Sex: Female
  Weight: 75.3 kg

DRUGS (2)
  1. MK-0683 [Suspect]
     Indication: GLIOBLASTOMA
     Dosage: 300 MG/DAY
     Route: 048
     Dates: start: 20130402, end: 20130412
  2. THYROXIN [Concomitant]
     Indication: HYPOTHYROIDISM
     Dosage: 75 MG/DAY
     Dates: start: 201205, end: 20130411

REACTIONS (2)
  - Headache [Not Recovered/Not Resolved]
  - Vomiting [Not Recovered/Not Resolved]
